FAERS Safety Report 8419862-6 (Version None)
Quarter: 2012Q2

REPORT INFORMATION
  Report Type: 
  Country: None (occurrence: None)
  Receive Date: 20120607
  Receipt Date: 20120605
  Transmission Date: 20120825
  Serious: Yes (Death, Other)
  Sender: FDA-Public Use
  Company Number: US-ABBOTT-12P-163-0935020-00

PATIENT
  Sex: Female
  Weight: 112.59 kg

DRUGS (2)
  1. HUMIRA [Suspect]
     Indication: PSORIASIS
     Route: 058
     Dates: start: 20090805, end: 20120515
  2. DIALYSIS [Concomitant]
     Indication: PRODUCT USED FOR UNKNOWN INDICATION
     Dosage: THREE TIMES/WEEK

REACTIONS (7)
  - SQUAMOUS CELL CARCINOMA [None]
  - HAEMATURIA [None]
  - HYPERLIPIDAEMIA [None]
  - BASAL CELL CARCINOMA [None]
  - CEREBROVASCULAR ACCIDENT [None]
  - ANAEMIA [None]
  - RENAL FAILURE [None]
